FAERS Safety Report 18339171 (Version 1)
Quarter: 2020Q3

REPORT INFORMATION
  Report Type: Spontaneous
  Country: US (occurrence: US)
  Receive Date: 20200930
  Receipt Date: 20200930
  Transmission Date: 20201103
  Serious: Yes (Hospitalization)
  Sender: FDA-Public Use
  Company Number: None

PATIENT
  Age: 62 Year
  Sex: Female
  Weight: 64 kg

DRUGS (2)
  1. PACLITAXEL (PACLITAXEL 300MG/50ML INJ, VIL, 50ML) [Suspect]
     Active Substance: PACLITAXEL
     Indication: LUNG ADENOCARCINOMA STAGE IV
     Dosage: ?          OTHER FREQUENCY:UNKNOWN;OTHER ROUTE:IV?
     Dates: start: 20200821, end: 20200911
  2. PACLITAXEL (PACLITAXEL 300MG/50ML INJ, VIL, 50ML) [Suspect]
     Active Substance: PACLITAXEL
     Indication: NON-SMALL CELL LUNG CANCER STAGE IV
     Dosage: ?          OTHER FREQUENCY:UNKNOWN;OTHER ROUTE:IV?
     Dates: start: 20200821, end: 20200911

REACTIONS (16)
  - Hyperhidrosis [None]
  - Chest pain [None]
  - Flushing [None]
  - Dyspnoea [None]
  - Cough [None]
  - Infusion related reaction [None]
  - Vomiting [None]
  - Feeling hot [None]
  - Wheezing [None]
  - Hypotension [None]
  - Hypovolaemia [None]
  - Anaphylactic reaction [None]
  - Tachycardia [None]
  - Nausea [None]
  - Tachypnoea [None]
  - Angina pectoris [None]

NARRATIVE: CASE EVENT DATE: 20200911
